FAERS Safety Report 8361581-9 (Version None)
Quarter: 2012Q2

REPORT INFORMATION
  Report Type: 
  Country: None (occurrence: None)
  Receive Date: 20120515
  Receipt Date: 20120511
  Transmission Date: 20120825
  Serious: Yes (Disabling, Other)
  Sender: FDA-Public Use
  Company Number: US-PFIZER INC-2012115793

PATIENT
  Sex: Female
  Weight: 76.644 kg

DRUGS (5)
  1. TRICOR [Concomitant]
     Indication: CARDIAC DISORDER
     Dosage: 145 MG, DAILY
  2. LASIX [Concomitant]
     Indication: CARDIAC DISORDER
     Dosage: 80 MG, 2X/DAY
  3. LIPITOR [Suspect]
     Indication: BLOOD CHOLESTEROL INCREASED
     Dosage: UNK
     Route: 048
     Dates: start: 19930101, end: 19980101
  4. LISINOPRIL [Concomitant]
     Indication: HYPERTENSION
     Dosage: 10 MG, DAILY
  5. PLAVIX [Concomitant]
     Indication: ANGINA PECTORIS
     Dosage: 40 MG, 2X/DAY

REACTIONS (3)
  - BACK DISORDER [None]
  - CARDIAC DISORDER [None]
  - MEMORY IMPAIRMENT [None]
